FAERS Safety Report 9617466 (Version 2)
Quarter: 2013Q4

REPORT INFORMATION
  Report Type: Spontaneous
  Country: US (occurrence: None)
  Receive Date: 20131009
  Receipt Date: 20131119
  Transmission Date: 20140711
  Serious: Yes (Hospitalization)
  Sender: FDA-Public Use
  Company Number: 2013US002386

PATIENT
  Age: 64 Year
  Sex: Male
  Weight: 59 kg

DRUGS (5)
  1. ICLUSIG [Suspect]
     Indication: ACUTE LYMPHOCYTIC LEUKAEMIA
     Route: 048
     Dates: start: 20130205, end: 20130825
  2. AMLODIPINE (AMLODIPINE) [Concomitant]
  3. FLUCONAZOLE (FLUCONAZOLE) [Concomitant]
  4. METOPROLOL SUCCINATE (METOPROLOL SUCCINATE) [Concomitant]
  5. VALACYCLOVIR HYDROCHLORIDE (VALACYCLOVIR HYDROCHLORIDE) [Concomitant]

REACTIONS (19)
  - Renal failure acute [None]
  - Renal failure acute [None]
  - Diarrhoea [None]
  - Dehydration [None]
  - Hepatocellular injury [None]
  - Clostridium difficile colitis [None]
  - Gastroenteritis rotavirus [None]
  - Hypertension [None]
  - Feeling abnormal [None]
  - Dyspnoea [None]
  - Platelet count decreased [None]
  - Dizziness [None]
  - Hypokalaemia [None]
  - Hypoalbuminaemia [None]
  - International normalised ratio increased [None]
  - Blood albumin decreased [None]
  - Fluid overload [None]
  - Ascites [None]
  - Formication [None]
